FAERS Safety Report 4798011-X (Version None)
Quarter: 2005Q3

REPORT INFORMATION
  Report Type: 
  Country: None (occurrence: None)
  Receive Date: 20050929
  Receipt Date: 20050823
  Transmission Date: 20060218
  Serious: No
  Sender: FDA-Public Use
  Company Number: 05P-163-0309048-00

PATIENT
  Age: 56 Year
  Sex: Female
  Weight: 106.5 kg

DRUGS (5)
  1. HUMIRA [Suspect]
     Indication: RHEUMATOID ARTHRITIS
     Dosage: 40 MG, 1 IN 1 WK, SUBCUTANEOUS
     Route: 058
     Dates: start: 20041001
  2. MELOXICAM [Concomitant]
  3. ATORVASTATIN CALCIUM [Concomitant]
  4. TORSEMIDE [Concomitant]
  5. ULTRACET [Concomitant]

REACTIONS (2)
  - COUGH [None]
  - WHEEZING [None]
